FAERS Safety Report 8779356 (Version 2)
Quarter: 2012Q4

REPORT INFORMATION
  Report Type: 
  Country: AU (occurrence: AU)
  Receive Date: 20120911
  Receipt Date: 20121005
  Transmission Date: 20130627
  Serious: Yes (Life-Threatening, Hospitalization, Disabling)
  Sender: FDA-Public Use
  Company Number: AU-B.I. PHARMACEUTICALS,INC./RIDGEFIELD-2012-AU-01574AU

PATIENT
  Age: 77 None
  Sex: Female
  Weight: 95 kg

DRUGS (4)
  1. PRADAXA [Suspect]
     Indication: ATRIAL FIBRILLATION
     Dosage: 220 mg
     Dates: start: 20110831, end: 20120612
  2. ATACAND [Concomitant]
     Dosage: 8 mg
  3. NOTEN [Concomitant]
     Dosage: 50 mg
  4. REFRESH LIQUIGEL [Concomitant]

REACTIONS (8)
  - Subdural haematoma [Not Recovered/Not Resolved]
  - Subdural haematoma [Not Recovered/Not Resolved]
  - Femoral neck fracture [Unknown]
  - Fall [Unknown]
  - Muscular weakness [Unknown]
  - Confusional state [Unknown]
  - Dysarthria [Unknown]
  - Depressed level of consciousness [Unknown]
